FAERS Safety Report 21537174 (Version 1)
Quarter: 2022Q4

REPORT INFORMATION
  Report Type: Spontaneous
  Country: CN (occurrence: CN)
  Receive Date: 20221101
  Receipt Date: 20221101
  Transmission Date: 20230113
  Serious: Yes (Other)
  Sender: FDA-Public Use
  Company Number: CN-SCALL-2022-CN-000374

PATIENT
  Age: 59 Year
  Sex: Female
  Weight: 52 kg

DRUGS (4)
  1. RABEPRAZOLE SODIUM [Suspect]
     Active Substance: RABEPRAZOLE SODIUM
     Indication: Helicobacter infection
     Dosage: (10 MG,12 HR)
     Route: 048
     Dates: start: 20221012, end: 20221013
  2. DOXYCYCLINE HYDROCHLORIDE [Suspect]
     Active Substance: DOXYCYCLINE HYDROCHLORIDE
     Dosage: (0.1 GM,12 HR)
     Route: 048
     Dates: start: 20221012, end: 20221013
  3. AMOXICILLIN [Suspect]
     Active Substance: AMOXICILLIN
     Dosage: (1000 MG,12 HR)
     Route: 048
     Dates: start: 20221012, end: 20221013
  4. BISMUTH [Concomitant]
     Active Substance: BISMUTH
     Dosage: (0.2 GM,12 HR)
     Route: 048
     Dates: start: 20221012, end: 20221013

REACTIONS (3)
  - Gastrooesophageal reflux disease [Unknown]
  - Nausea [Unknown]
  - Drug eruption [Unknown]

NARRATIVE: CASE EVENT DATE: 20221013
